FAERS Safety Report 9851015 (Version 3)
Quarter: 2014Q2

REPORT INFORMATION
  Report Type: Spontaneous
  Country: US (occurrence: US)
  Receive Date: 20140128
  Receipt Date: 20140623
  Transmission Date: 20141212
  Serious: Yes (Hospitalization)
  Sender: FDA-Public Use
  Company Number: US-B.I. PHARMACEUTICALS,INC./RIDGEFIELD-2013-BI-21648BP

PATIENT
  Age: 75 Year
  Sex: Female
  Weight: 72.57 kg

DRUGS (8)
  1. PRADAXA [Suspect]
     Indication: ANTICOAGULANT THERAPY
     Route: 065
     Dates: start: 20110622, end: 20110716
  2. LEVOTHYROXINE [Concomitant]
     Route: 065
     Dates: start: 1967
  3. FUROSEMIDE [Concomitant]
     Route: 065
  4. ATENOLOL [Concomitant]
     Route: 065
  5. KLOR-CON [Concomitant]
     Route: 065
  6. FISH OIL [Concomitant]
     Route: 065
  7. CENNEMAN [Concomitant]
     Route: 065
  8. CENTRUM [Concomitant]
     Route: 065

REACTIONS (1)
  - Lower gastrointestinal haemorrhage [Unknown]
